FAERS Safety Report 24415484 (Version 1)
Quarter: 2024Q4

REPORT INFORMATION
  Report Type: Spontaneous
  Country: US (occurrence: US)
  Receive Date: 20241009
  Receipt Date: 20241009
  Transmission Date: 20250114
  Serious: No
  Sender: JOHNSON AND JOHNSON
  Company Number: US-JNJFOC-20240978897

PATIENT
  Age: 9 Year
  Sex: Male

DRUGS (2)
  1. RISPERDAL [Suspect]
     Active Substance: RISPERIDONE
     Indication: Product used for unknown indication
     Route: 048
     Dates: start: 20140305
  2. RISPERDAL [Suspect]
     Active Substance: RISPERIDONE
     Dosage: IN VARYING DOSES OF 1.5 MG AND 0.5 MG IN VARYING FREQUENCIES
     Route: 048
     Dates: end: 20140611

REACTIONS (2)
  - Weight increased [Unknown]
  - Off label use [Unknown]

NARRATIVE: CASE EVENT DATE: 20140101
